FAERS Safety Report 4431947-8 (Version None)
Quarter: 2004Q3

REPORT INFORMATION
  Report Type: 
  Country: None (occurrence: None)
  Receive Date: 20040824
  Receipt Date: 20040810
  Transmission Date: 20050211
  Serious: Yes (Disabling)
  Sender: FDA-Public Use
  Company Number: 2004SE03341

PATIENT
  Age: 69 Year
  Sex: Male
  Weight: 74 kg

DRUGS (1)
  1. CRESTOR [Suspect]
     Indication: DYSLIPIDAEMIA
     Dosage: 40 MG DAILY PO
     Route: 048
     Dates: start: 20031217, end: 20040728

REACTIONS (3)
  - EJACULATION FAILURE [None]
  - ERECTILE DYSFUNCTION [None]
  - HEADACHE [None]
